FAERS Safety Report 7295729-4 (Version None)
Quarter: 2011Q1

REPORT INFORMATION
  Report Type: 
  Country: None (occurrence: None)
  Receive Date: 20110216
  Receipt Date: 20101223
  Transmission Date: 20110831
  Serious: No
  Sender: FDA-Public Use
  Company Number: US-ABBOTT-10P-163-0693406-00

PATIENT
  Sex: Male
  Weight: 115.77 kg

DRUGS (4)
  1. ACTOS [Concomitant]
     Indication: PRODUCT USED FOR UNKNOWN INDICATION
  2. METFORMIN HCL [Concomitant]
     Indication: PRODUCT USED FOR UNKNOWN INDICATION
  3. SIMCOR [Suspect]
     Indication: HYPERLIPIDAEMIA
     Dates: start: 20101202
  4. INSULIN [Concomitant]
     Indication: PRODUCT USED FOR UNKNOWN INDICATION

REACTIONS (1)
  - BLOOD GLUCOSE INCREASED [None]
